FAERS Safety Report 6652387-7 (Version None)
Quarter: 2010Q1

REPORT INFORMATION
  Report Type: 
  Country: None (occurrence: None)
  Receive Date: 20100323
  Receipt Date: 20100315
  Transmission Date: 20100710
  Serious: Yes (Hospitalization)
  Sender: FDA-Public Use
  Company Number: 008814

PATIENT
  Sex: Female
  Weight: 74.7 kg

DRUGS (11)
  1. KEPPRA [Suspect]
     Indication: CONVULSION
     Dosage: (1000 MG BID ORAL)
     Route: 048
  2. AGGRENOX [Concomitant]
  3. BETAPACE [Concomitant]
  4. BYETTA [Concomitant]
  5. COUMADIN [Concomitant]
  6. CRESTOR [Concomitant]
  7. HYDROCHLOROTHIAZIDE [Concomitant]
  8. LANTUS [Concomitant]
  9. LOTREL [Concomitant]
  10. NITROGLYCERIN [Concomitant]
  11. RANEXA [Concomitant]

REACTIONS (2)
  - CHEST PAIN [None]
  - CONFUSIONAL STATE [None]
